FAERS Safety Report 4289928-3 (Version None)
Quarter: 2004Q1

REPORT INFORMATION
  Report Type: 
  Country: None (occurrence: None)
  Receive Date: 20040209
  Receipt Date: 20040128
  Transmission Date: 20041129
  Serious: Yes (Other)
  Sender: FDA-Public Use
  Company Number: PHBS2004BR01532

PATIENT
  Age: 90 Year
  Sex: Female

DRUGS (4)
  1. MIACALCIC NASAL SPRAY [Suspect]
     Indication: OSTEOPOROSIS
     Dosage: ONCE A DAY
  2. RIVOTRIL [Concomitant]
     Dosage: 2 DRP/DAY
     Route: 048
  3. GINKGO BILOBA [Concomitant]
  4. HOMEOPATHIC PREPARATIONS [Concomitant]

REACTIONS (3)
  - AGEUSIA [None]
  - DEAFNESS [None]
  - DIZZINESS [None]
